FAERS Safety Report 12807309 (Version 1)
Quarter: 2016Q4

REPORT INFORMATION
  Report Type: Spontaneous
  Country: IN (occurrence: IN)
  Receive Date: 20161004
  Receipt Date: 20161004
  Transmission Date: 20170207
  Serious: Yes (Hospitalization, Other)
  Sender: FDA-Public Use
  Company Number: IN-PFIZER INC-2016457085

PATIENT
  Sex: Female

DRUGS (1)
  1. LYRICA [Suspect]
     Active Substance: PREGABALIN
     Indication: PAIN
     Dosage: UNK
     Dates: start: 201603

REACTIONS (6)
  - Dyspepsia [Unknown]
  - Abasia [Unknown]
  - Mobility decreased [Unknown]
  - Pain [Unknown]
  - Condition aggravated [Unknown]
  - Gait disturbance [Unknown]
